FAERS Safety Report 23333001 (Version 1)
Quarter: 2023Q4

REPORT INFORMATION
  Report Type: Spontaneous
  Country: FR (occurrence: FR)
  Receive Date: 20231222
  Receipt Date: 20231222
  Transmission Date: 20240110
  Serious: Yes (Hospitalization, Other)
  Sender: FDA-Public Use
  Company Number: FR-AFSSAPS-AN2023001128

PATIENT
  Age: 39 Year
  Sex: Female

DRUGS (6)
  1. MORPHINE [Suspect]
     Active Substance: MORPHINE
     Indication: Spinal anaesthesia
     Dosage: UNK
     Route: 008
     Dates: start: 20230818, end: 20230818
  2. SUFENTANIL [Suspect]
     Active Substance: SUFENTANIL
     Indication: Spinal anaesthesia
     Dosage: UNK
     Route: 008
     Dates: start: 20230818, end: 20230818
  3. CEFAZOLIN SODIUM [Suspect]
     Active Substance: CEFAZOLIN SODIUM
     Indication: Antibiotic prophylaxis
     Dosage: UNK
     Route: 040
     Dates: start: 20230818, end: 20230818
  4. BUPIVACAINE [Suspect]
     Active Substance: BUPIVACAINE
     Indication: Spinal anaesthesia
     Dosage: UNK
     Route: 008
     Dates: start: 20230818, end: 20230818
  5. XYLOCAINE [Suspect]
     Active Substance: LIDOCAINE HYDROCHLORIDE
     Indication: Pain
     Dosage: 2 MILLILITER, IN TOTAL
     Route: 065
     Dates: start: 20230818, end: 20230818
  6. EPHEDRINE [Suspect]
     Active Substance: EPHEDRINE
     Indication: Hypertension
     Dosage: 12 MILLIGRAM, IN TOTAL
     Route: 040
     Dates: start: 20230818, end: 20230818

REACTIONS (2)
  - Myoclonus [Recovered/Resolved]
  - Anaphylactic shock [Recovered/Resolved]

NARRATIVE: CASE EVENT DATE: 20230818
